FAERS Safety Report 19618389 (Version 2)
Quarter: 2022Q2

REPORT INFORMATION
  Report Type: Spontaneous
  Country: US (occurrence: None)
  Receive Date: 20210727
  Receipt Date: 20220621
  Transmission Date: 20220720
  Serious: No
  Sender: FDA-Public Use
  Company Number: US-ROCHE-2783797

PATIENT
  Sex: Male
  Weight: 118.04 kg

DRUGS (4)
  1. XELODA [Suspect]
     Active Substance: CAPECITABINE
     Indication: Rectal cancer
     Dosage: TAKE 4 TABLET TWICE A DAY FOR 14 DAYS ON AND 7 DAYS OFF
     Route: 048
     Dates: start: 20201021
  2. XELODA [Suspect]
     Active Substance: CAPECITABINE
     Route: 048
     Dates: start: 20201021
  3. ELIQUIS [Concomitant]
     Active Substance: APIXABAN
     Route: 048
     Dates: start: 20201019
  4. INSULIN NOS [Concomitant]
     Active Substance: INSULIN NOS

REACTIONS (3)
  - Diarrhoea [Unknown]
  - Rhinorrhoea [Unknown]
  - Neuropathy peripheral [Unknown]
